FAERS Safety Report 10523251 (Version 1)
Quarter: 2014Q4

REPORT INFORMATION
  Report Type: Spontaneous
  Country: GB (occurrence: None)
  Receive Date: 20141010
  Receipt Date: 20141010
  Transmission Date: 20150528
  Serious: Yes (Other)
  Sender: FDA-Public Use
  Company Number: 2014JUB00157

PATIENT
  Age: 52 Year
  Sex: Female

DRUGS (2)
  1. MIZOLASTINE [Concomitant]
     Active Substance: MIZOLASTINE
  2. CETIRIZINE [Suspect]
     Active Substance: CETIRIZINE HYDROCHLORIDE
     Indication: CHRONIC SPONTANEOUS URTICARIA

REACTIONS (2)
  - Anaphylactic reaction [None]
  - Drug hypersensitivity [None]
